FAERS Safety Report 6314935-6 (Version None)
Quarter: 2009Q3

REPORT INFORMATION
  Report Type: 
  Country: None (occurrence: None)
  Receive Date: 20090819
  Receipt Date: 20090813
  Transmission Date: 20100115
  Serious: Yes (Other)
  Sender: FDA-Public Use
  Company Number: A0802129A

PATIENT
  Sex: Female

DRUGS (2)
  1. REQUIP [Suspect]
     Indication: PARKINSON'S DISEASE
     Route: 048
  2. CONCURRENT MEDICATIONS [Concomitant]

REACTIONS (2)
  - GLAUCOMA [None]
  - READING DISORDER [None]
